FAERS Safety Report 11756964 (Version 1)
Quarter: 2015Q4

REPORT INFORMATION
  Report Type: Spontaneous
  Country: US (occurrence: US)
  Receive Date: 20151120
  Receipt Date: 20151120
  Transmission Date: 20160304
  Serious: Yes (Hospitalization, Other)
  Sender: FDA-Public Use
  Company Number: US-HOSPIRA-3081601

PATIENT
  Age: 51 Year
  Sex: Female

DRUGS (3)
  1. CYTARABINE. [Suspect]
     Active Substance: CYTARABINE
     Indication: ACUTE MYELOID LEUKAEMIA
     Dosage: SEVEN DAILY DOSES
  2. IDARUBICIN [Concomitant]
     Active Substance: IDARUBICIN
     Indication: ACUTE MYELOID LEUKAEMIA
     Dosage: THREE DAILY DOSES
  3. CYTARABINE. [Suspect]
     Active Substance: CYTARABINE
     Indication: ACUTE MYELOID LEUKAEMIA
     Dosage: 3 GM/M^2, THREE CYCLES, TWICE DAILY ON DAYS 1, 3 AND 5 INFUSED OVER 3 H
     Route: 041

REACTIONS (8)
  - Gastrointestinal haemorrhage [Unknown]
  - Bone marrow failure [Unknown]
  - Sinus bradycardia [Recovered/Resolved]
  - Pancytopenia [Unknown]
  - Nausea [Unknown]
  - Vomiting [Unknown]
  - Thrombocytopenia [Unknown]
  - Mucosal inflammation [Unknown]
